FAERS Safety Report 4640686-X (Version None)
Quarter: 2005Q2

REPORT INFORMATION
  Report Type: 
  Country: None (occurrence: None)
  Receive Date: 20050419
  Receipt Date: 20050412
  Transmission Date: 20051028
  Serious: Yes (Hospitalization)
  Sender: FDA-Public Use
  Company Number: 2005058507

PATIENT
  Age: 38 Year
  Sex: Male

DRUGS (5)
  1. ACCUPRIL [Suspect]
     Indication: CARDIAC FAILURE
     Dosage: 5 MG ( 5 MG, DAILY), ORAL
     Route: 048
     Dates: end: 20050218
  2. SOTALOL HCL [Concomitant]
  3. ACENOCOUMAROL (ACENOCOUMAROL) [Concomitant]
  4. ISOSORBIDE DINITRATE (ISOSORBIDE DINITRATE0 [Concomitant]
  5. DIGOXIN [Concomitant]

REACTIONS (2)
  - LUNG INFILTRATION [None]
  - PNEUMONIA [None]
